FAERS Safety Report 7114544-5 (Version None)
Quarter: 2010Q4

REPORT INFORMATION
  Report Type: 
  Country: None (occurrence: None)
  Receive Date: 20101119
  Receipt Date: 20101117
  Transmission Date: 20110411
  Serious: Yes (Death)
  Sender: FDA-Public Use
  Company Number: JP-GENENTECH-309805

PATIENT
  Sex: Male

DRUGS (1)
  1. GRTPA [Suspect]
     Indication: PRODUCT USED FOR UNKNOWN INDICATION
     Dosage: UNK
     Route: 042
     Dates: start: 20101020

REACTIONS (4)
  - ALTERED STATE OF CONSCIOUSNESS [None]
  - AORTIC DISSECTION [None]
  - BLOOD PRESSURE DECREASED [None]
  - OLIGURIA [None]
